FAERS Safety Report 20609950 (Version 27)
Quarter: 2024Q3

REPORT INFORMATION
  Report Type: Spontaneous
  Country: CA (occurrence: CA)
  Receive Date: 20220318
  Receipt Date: 20240821
  Transmission Date: 20241017
  Serious: Yes (Hospitalization, Other)
  Sender: CELLTRION
  Company Number: CA-CELLTRION INC.-2022CA003239

PATIENT

DRUGS (43)
  1. INFLECTRA [Suspect]
     Active Substance: INFLIXIMAB-DYYB
     Indication: Crohn^s disease
     Dosage: 5 MG/KG, WEEKS0,2,6, THEN Q8WEEKS
     Route: 042
     Dates: start: 20220308, end: 20220308
  2. INFLECTRA [Suspect]
     Active Substance: INFLIXIMAB-DYYB
     Dosage: 5 MG/KG, W 0,2,6, THEN Q 8 WEEKS
     Route: 042
     Dates: start: 20220308, end: 20220308
  3. INFLECTRA [Suspect]
     Active Substance: INFLIXIMAB-DYYB
     Dosage: 5 MG/KG, Q 8 WEEKS
     Route: 042
     Dates: start: 20220322
  4. INFLECTRA [Suspect]
     Active Substance: INFLIXIMAB-DYYB
     Dosage: 5 MG/KG, Q 8 WEEKS
     Route: 042
     Dates: start: 20220422, end: 20220422
  5. INFLECTRA [Suspect]
     Active Substance: INFLIXIMAB-DYYB
     Dosage: 5 MG/KG, Q 8 WEEKS
     Route: 042
     Dates: start: 20220422, end: 20220422
  6. INFLECTRA [Suspect]
     Active Substance: INFLIXIMAB-DYYB
     Dosage: 5 MG/KG, Q 8 WEEKS
     Route: 042
     Dates: start: 20220422, end: 20220422
  7. INFLECTRA [Suspect]
     Active Substance: INFLIXIMAB-DYYB
     Dosage: 5 MG/KG, AFTER 16 WEEKS AND 2 DAYS, (PRESCRIBED EVERY 8 WEEKS)
     Route: 042
     Dates: start: 20220614
  8. INFLECTRA [Suspect]
     Active Substance: INFLIXIMAB-DYYB
     Dosage: 5 MG/KG, Q 8 WEEKS (WEEKS0,2,6, THEN Q8WEEKS)
     Route: 042
     Dates: start: 20221006
  9. INFLECTRA [Suspect]
     Active Substance: INFLIXIMAB-DYYB
     Dosage: 10 MG/KG, Q 4 WEEKS (EVERY 8 WEEKS)
     Route: 042
     Dates: start: 20221121
  10. INFLECTRA [Suspect]
     Active Substance: INFLIXIMAB-DYYB
     Dosage: 10 MG/KG, Q 4 WEEKS
     Route: 042
     Dates: start: 20221121
  11. INFLECTRA [Suspect]
     Active Substance: INFLIXIMAB-DYYB
     Dosage: 10 MG/KG, Q 4 WEEKS
     Route: 042
     Dates: start: 20221219
  12. INFLECTRA [Suspect]
     Active Substance: INFLIXIMAB-DYYB
     Dosage: 10 MG/KG, Q 4 WEEKS
     Route: 042
     Dates: start: 20230116
  13. INFLECTRA [Suspect]
     Active Substance: INFLIXIMAB-DYYB
     Dosage: 10 MG/KG, Q 4 WEEKS
     Route: 042
     Dates: start: 20230116
  14. INFLECTRA [Suspect]
     Active Substance: INFLIXIMAB-DYYB
     Dosage: 10 MG/KG, Q 4 WEEKS
     Route: 042
     Dates: start: 20230223
  15. INFLECTRA [Suspect]
     Active Substance: INFLIXIMAB-DYYB
     Dosage: 10 MG/KG, Q 4 WEEKS
     Route: 042
     Dates: start: 20230223
  16. INFLECTRA [Suspect]
     Active Substance: INFLIXIMAB-DYYB
     Dosage: 940 MG (10 MG/KG), Q 4 WEEKS
     Route: 042
     Dates: start: 20230323
  17. INFLECTRA [Suspect]
     Active Substance: INFLIXIMAB-DYYB
     Dosage: 940 MG (10 MG/KG), Q 4 WEEKS
     Route: 042
     Dates: start: 20230323
  18. INFLECTRA [Suspect]
     Active Substance: INFLIXIMAB-DYYB
     Dosage: 950 MG (10 MG/KG), Q 4 WEEKS
     Route: 042
     Dates: start: 20230420
  19. INFLECTRA [Suspect]
     Active Substance: INFLIXIMAB-DYYB
     Dosage: 950 MG (10 MG/KG), Q 4 WEEKS
     Route: 042
     Dates: start: 20230518
  20. INFLECTRA [Suspect]
     Active Substance: INFLIXIMAB-DYYB
     Dosage: 950 MG (10 MG/KG), Q 4 WEEKS
     Route: 042
     Dates: start: 20230614
  21. INFLECTRA [Suspect]
     Active Substance: INFLIXIMAB-DYYB
     Dosage: 10 MG/KG, EVERY 4 WEEKS
     Route: 042
     Dates: start: 20230713
  22. INFLECTRA [Suspect]
     Active Substance: INFLIXIMAB-DYYB
     Dosage: 500 MG, AFTER 7 WEEKS (PRESCRIBED EVERY 4 WEEKS)
     Route: 042
     Dates: start: 20230905
  23. INFLECTRA [Suspect]
     Active Substance: INFLIXIMAB-DYYB
     Dosage: 500 MG, AFTER 7 WEEKS (PRESCRIBED EVERY 4 WEEKS)
     Route: 042
     Dates: start: 20230905
  24. INFLECTRA [Suspect]
     Active Substance: INFLIXIMAB-DYYB
     Dosage: 500 MG, AFTER 7 WEEKS (PRESCRIBED EVERY 4 WEEKS)
     Route: 042
     Dates: start: 20230905
  25. INFLECTRA [Suspect]
     Active Substance: INFLIXIMAB-DYYB
     Dosage: 275 MG (5 MG/KG), AFTER 8 WEEKS
     Route: 042
     Dates: start: 20231101
  26. INFLECTRA [Suspect]
     Active Substance: INFLIXIMAB-DYYB
     Dosage: 900 MG (10 MG/KG), AFTER 9 WEEKS AND 6 DAYS (PRES. EVERY 8 WEEKS)
     Route: 042
     Dates: start: 20240109
  27. INFLECTRA [Suspect]
     Active Substance: INFLIXIMAB-DYYB
     Dosage: 900 MG (10 MG/KG), AFTER 6 WEEKS AND 2 DAYS (PRES. EVERY 4 WEEKS)
     Route: 042
     Dates: start: 20240222
  28. INFLECTRA [Suspect]
     Active Substance: INFLIXIMAB-DYYB
     Dosage: 900 MG (10 MG/KG), EVERY 4 WEEKS
     Route: 042
     Dates: start: 20240325
  29. INFLECTRA [Suspect]
     Active Substance: INFLIXIMAB-DYYB
     Dosage: 900 MG (10 MG/KG), EVERY 4 WEEKS
     Route: 042
     Dates: start: 20240422
  30. INFLECTRA [Suspect]
     Active Substance: INFLIXIMAB-DYYB
     Dosage: 900 MG (10 MG/KG), EVERY 4 WEEKS
     Route: 042
     Dates: start: 20240521
  31. INFLECTRA [Suspect]
     Active Substance: INFLIXIMAB-DYYB
     Dosage: 870 MG (10 MG/KG), AFTER 3 WEEKS AND 6 DAYS, (PRESCRIBED EVERY 4 WEEKS)
     Route: 042
     Dates: start: 20240617
  32. INFLECTRA [Suspect]
     Active Substance: INFLIXIMAB-DYYB
     Dosage: 870 MG, 4 WEEKS (10MG/KG, EVERY 4 WEEKS)
     Route: 042
     Dates: start: 20240715
  33. INFLECTRA [Suspect]
     Active Substance: INFLIXIMAB-DYYB
     Dosage: 870 MG, AFTER 4 WEEKS (10MG/KG, EVERY 4 WEEK)
     Route: 042
     Dates: start: 20240812
  34. DIPHENHYDRAMINE [Concomitant]
     Active Substance: DIPHENHYDRAMINE
     Indication: Premedication
     Dosage: 50 MG
     Route: 048
     Dates: start: 20220422, end: 20220422
  35. DOXYTAB [DOXYCYCLINE HYDROCHLORIDE] [Concomitant]
     Indication: Hidradenitis
     Dosage: 100 MG, 2X/DAY
     Route: 048
  36. DOXYTAB [DOXYCYCLINE HYDROCHLORIDE] [Concomitant]
     Dosage: 100 MG, 2X/DAY
     Route: 048
     Dates: start: 2022
  37. DOXYTAB [DOXYCYCLINE HYDROCHLORIDE] [Concomitant]
     Dosage: 100 MG
  38. HYDROCORTISONE [Concomitant]
     Active Substance: HYDROCORTISONE\HYDROCORTISONE ACETATE
     Indication: Premedication
     Dosage: 100 MG
     Route: 042
     Dates: start: 20220422, end: 20220422
  39. LAMIVUDINE [Concomitant]
     Active Substance: LAMIVUDINE
     Dosage: UNK
  40. LAMIVUDINE [Concomitant]
     Active Substance: LAMIVUDINE
     Dosage: 1 DF
  41. LORAZEPAM [Concomitant]
     Active Substance: LORAZEPAM
     Dosage: 500 UG
     Route: 048
  42. METFORMIN [Concomitant]
     Active Substance: METFORMIN HYDROCHLORIDE
     Dosage: 500 MG, 2X/DAY
     Route: 048
  43. TRAMADOL [Concomitant]
     Active Substance: TRAMADOL\TRAMADOL HYDROCHLORIDE
     Dosage: 50 MG, 3X/DAY
     Route: 048

REACTIONS (38)
  - Abdominal pain [Recovering/Resolving]
  - Hidradenitis [Recovering/Resolving]
  - Abscess intestinal [Recovered/Resolved]
  - Anal abscess [Unknown]
  - Penile abscess [Not Recovered/Not Resolved]
  - Nausea [Recovering/Resolving]
  - Headache [Recovered/Resolved]
  - Weight decreased [Recovered/Resolved]
  - Clostridium difficile infection [Recovering/Resolving]
  - Drug ineffective [Unknown]
  - Condition aggravated [Recovered/Resolved]
  - Malaise [Unknown]
  - Inflammation [Not Recovered/Not Resolved]
  - Abdominal distension [Not Recovered/Not Resolved]
  - Dyspnoea [Not Recovered/Not Resolved]
  - Discomfort [Not Recovered/Not Resolved]
  - Migraine [Recovered/Resolved]
  - Feeling abnormal [Not Recovered/Not Resolved]
  - Eye swelling [Not Recovered/Not Resolved]
  - Dizziness [Recovered/Resolved]
  - Swelling face [Recovered/Resolved]
  - Abdominal tenderness [Recovered/Resolved]
  - Lacrimation increased [Recovered/Resolved]
  - Myalgia [Unknown]
  - Headache [Recovered/Resolved]
  - Head discomfort [Recovered/Resolved]
  - Face oedema [Unknown]
  - Dyspnoea exertional [Not Recovered/Not Resolved]
  - Abscess [Recovered/Resolved]
  - Nausea [Recovered/Resolved]
  - Infusion site pain [Unknown]
  - Oedema [Unknown]
  - Arthralgia [Recovered/Resolved]
  - Product after taste [Unknown]
  - Influenza [Recovered/Resolved]
  - Fistula [Recovered/Resolved]
  - Off label use [Unknown]
  - Inappropriate schedule of product administration [Unknown]

NARRATIVE: CASE EVENT DATE: 20220101
